FAERS Safety Report 12372001 (Version 3)
Quarter: 2016Q2

REPORT INFORMATION
  Report Type: Report from Study
  Country: CA (occurrence: CA)
  Receive Date: 20160516
  Receipt Date: 20160624
  Transmission Date: 20160815
  Serious: Yes (Other)
  Sender: FDA-Public Use
  Company Number: CA-PFIZER INC-2016255877

PATIENT
  Age: 45 Year
  Sex: Female

DRUGS (7)
  1. TRAMCET [Concomitant]
     Active Substance: ACETAMINOPHEN\TRAMADOL
     Indication: PAIN
     Dosage: UNK
  2. ENTYVIO [Suspect]
     Active Substance: VEDOLIZUMAB
     Indication: COLITIS ULCERATIVE
     Dosage: 300 MG, UNK
     Route: 042
     Dates: start: 20160427
  3. ARAVA [Concomitant]
     Active Substance: LEFLUNOMIDE
     Dosage: UNK
  4. BUTRANS [Concomitant]
     Active Substance: BUPRENORPHINE
     Indication: PAIN
     Dosage: 10 UG, WEEKLY
  5. PANTOLOC [Suspect]
     Active Substance: PANTOPRAZOLE SODIUM
     Indication: GASTROOESOPHAGEAL REFLUX DISEASE
     Dosage: 40 MG, 1X/DAY
  6. SULFASALAZINE. [Concomitant]
     Active Substance: SULFASALAZINE
     Dosage: 500 MG, UNK
  7. MULTIVITAMIN /07504101/ [Concomitant]
     Active Substance: VITAMINS
     Dosage: UNK

REACTIONS (11)
  - Muscle spasms [Recovering/Resolving]
  - Mobility decreased [Recovering/Resolving]
  - Balance disorder [Recovering/Resolving]
  - Fatigue [Recovering/Resolving]
  - Cough [Recovering/Resolving]
  - Pruritus [Recovering/Resolving]
  - Nausea [Recovering/Resolving]
  - Asthenia [Recovering/Resolving]
  - Abdominal distension [Recovering/Resolving]
  - Abdominal pain [Recovering/Resolving]
  - Blood pressure increased [Unknown]

NARRATIVE: CASE EVENT DATE: 20160427
